FAERS Safety Report 14447921 (Version 3)
Quarter: 2018Q1

REPORT INFORMATION
  Report Type: Report from Study
  Country: None (occurrence: CA)
  Receive Date: 20180126
  Receipt Date: 20180216
  Transmission Date: 20180509
  Serious: Yes (Death, Hospitalization)
  Sender: FDA-Public Use
  Company Number: CA-ABBVIE-18S-028-2235929-00

PATIENT
  Age: 68 Year
  Sex: Male
  Weight: 112 kg

DRUGS (6)
  1. ROSUVASTATIN. [Concomitant]
     Active Substance: ROSUVASTATIN
     Indication: PRODUCT USED FOR UNKNOWN INDICATION
     Dates: start: 2014
  2. ABIRATERONE [Concomitant]
     Active Substance: ABIRATERONE
     Indication: PRODUCT USED FOR UNKNOWN INDICATION
     Dates: start: 2017
  3. HYDROMORPHCONTIN [Concomitant]
     Indication: PRODUCT USED FOR UNKNOWN INDICATION
     Dates: start: 2017
  4. AMLODIPINE [Concomitant]
     Active Substance: AMLODIPINE BESYLATE
     Indication: PRODUCT USED FOR UNKNOWN INDICATION
     Dates: start: 2014
  5. LUPRON DEPOT [Suspect]
     Active Substance: LEUPROLIDE ACETATE
     Indication: PRODUCT USED FOR UNKNOWN INDICATION
     Route: 030
     Dates: start: 20171129
  6. PREDNISONE. [Concomitant]
     Active Substance: PREDNISONE
     Indication: PRODUCT USED FOR UNKNOWN INDICATION
     Dates: start: 2017

REACTIONS (7)
  - Procedural pain [Unknown]
  - Spinal cord compression [Recovering/Resolving]
  - Fall [Unknown]
  - Dysstasia [Unknown]
  - Abdominal pain lower [Unknown]
  - Pain [Unknown]
  - Diverticular perforation [Fatal]

NARRATIVE: CASE EVENT DATE: 201801
